FAERS Safety Report 9901395 (Version 1)
Quarter: 2014Q1

REPORT INFORMATION
  Report Type: Spontaneous
  Country: US (occurrence: US)
  Receive Date: 20140217
  Receipt Date: 20140217
  Transmission Date: 20141002
  Serious: Yes (Other)
  Sender: FDA-Public Use
  Company Number: US-PFIZER INC-2014041430

PATIENT
  Age: 62 Year
  Sex: Female

DRUGS (6)
  1. LYRICA [Suspect]
     Indication: PAIN
     Dosage: 100 MG, 3X/DAY
     Route: 048
  2. LYRICA [Suspect]
     Indication: PAIN IN EXTREMITY
  3. SERZONE [Concomitant]
     Dosage: UNK
  4. CLONOPIN [Concomitant]
     Dosage: UNK
  5. PERCOCET [Concomitant]
     Dosage: UNK
  6. IBUPROFEN [Concomitant]
     Dosage: UNK

REACTIONS (9)
  - Arthropathy [Unknown]
  - Fibromyalgia [Unknown]
  - Bedridden [Unknown]
  - Osteonecrosis [Unknown]
  - Arthralgia [Unknown]
  - Nerve injury [Unknown]
  - Neck injury [Unknown]
  - Pain [Unknown]
  - Drug ineffective [Unknown]
